FAERS Safety Report 11523751 (Version 1)
Quarter: 2015Q3

REPORT INFORMATION
  Report Type: Spontaneous
  Country: US (occurrence: US)
  Receive Date: 20150903
  Receipt Date: 20150903
  Transmission Date: 20151125
  Serious: Yes (Other)
  Sender: FDA-Public Use
  Company Number: US-ELI_LILLY_AND_COMPANY-US201301008074

PATIENT
  Sex: Male
  Weight: 77.55 kg

DRUGS (9)
  1. CYMBALTA [Suspect]
     Active Substance: DULOXETINE HYDROCHLORIDE
     Indication: ANXIETY
     Dosage: 60 MG, QD
     Dates: start: 201210, end: 201301
  2. FOSAMAX [Concomitant]
     Active Substance: ALENDRONATE SODIUM
     Dosage: 1 DF, WEEKLY (1/W)
  3. LISINOPRIL. [Concomitant]
     Active Substance: LISINOPRIL
  4. NARCOTAN [Concomitant]
  5. AMBIEN [Concomitant]
     Active Substance: ZOLPIDEM TARTRATE
     Dosage: 1 DF, EACH EVENING
  6. XANAX [Concomitant]
     Active Substance: ALPRAZOLAM
     Dosage: 0.25 MG, PRN
  7. CYMBALTA [Interacting]
     Active Substance: DULOXETINE HYDROCHLORIDE
     Dosage: 60 MG, QD
     Dates: start: 20130124
  8. FLEXERIL [Interacting]
     Active Substance: CYCLOBENZAPRINE HYDROCHLORIDE
     Dosage: 1 DF, EACH EVENING
  9. CELEBREX [Concomitant]
     Active Substance: CELECOXIB
     Dosage: 200 MG, QD

REACTIONS (14)
  - Irritability [Unknown]
  - Erectile dysfunction [Unknown]
  - Rash generalised [Recovering/Resolving]
  - Nausea [Unknown]
  - Drug interaction [Unknown]
  - Agitation [Unknown]
  - Urticaria [Recovering/Resolving]
  - Increased tendency to bruise [Unknown]
  - Drug withdrawal syndrome [Unknown]
  - Tremor [Recovering/Resolving]
  - Dizziness [Unknown]
  - Tinnitus [Unknown]
  - Insomnia [Not Recovered/Not Resolved]
  - Serotonin syndrome [Unknown]
